FAERS Safety Report 13036229 (Version 1)
Quarter: 2016Q4

REPORT INFORMATION
  Report Type: Spontaneous
  Country: US (occurrence: US)
  Receive Date: 20161216
  Receipt Date: 20161216
  Transmission Date: 20170207
  Serious: No
  Sender: FDA-Public Use
  Company Number: US-ABBVIE-16P-163-1552214-00

PATIENT
  Age: 35 Year
  Sex: Male
  Weight: 75.82 kg

DRUGS (2)
  1. GENERIC FENOFIBRIC ACID [Suspect]
     Active Substance: FENOFIBRIC ACID
     Indication: LOW DENSITY LIPOPROTEIN INCREASED
     Dosage: UNKNOWN GENERIC MANUFACTURER AND DOSE
     Route: 065
     Dates: start: 2015, end: 2015
  2. TRILIPIX [Suspect]
     Active Substance: FENOFIBRIC ACID
     Indication: LOW DENSITY LIPOPROTEIN INCREASED
     Route: 048
     Dates: start: 2012, end: 201507

REACTIONS (2)
  - Abdominal discomfort [Recovered/Resolved]
  - Low density lipoprotein increased [Not Recovered/Not Resolved]

NARRATIVE: CASE EVENT DATE: 2015
